FAERS Safety Report 21099098 (Version 3)
Quarter: 2022Q4

REPORT INFORMATION
  Report Type: Spontaneous
  Country: BR (occurrence: None)
  Receive Date: 20220719
  Receipt Date: 20221110
  Transmission Date: 20230113
  Serious: Yes (Other)
  Sender: FDA-Public Use
  Company Number: BR-Merck Healthcare KGaA-9336692

PATIENT
  Sex: Male

DRUGS (1)
  1. SAIZEN [Suspect]
     Active Substance: SOMATROPIN
     Indication: Muscle disorder
     Dosage: BATCH NO: BA074755 AND EXPIRY DATE: MAY/2023, STARTED 1 YEAR AGO
     Route: 058

REACTIONS (4)
  - Rhinoplasty [Recovered/Resolved]
  - Intentional device misuse [Not Recovered/Not Resolved]
  - Product prescribing issue [Unknown]
  - Off label use [Not Recovered/Not Resolved]
